FAERS Safety Report 17249672 (Version 1)
Quarter: 2020Q1

REPORT INFORMATION
  Report Type: Spontaneous
  Country: IT (occurrence: IT)
  Receive Date: 20200108
  Receipt Date: 20200108
  Transmission Date: 20200409
  Serious: Yes (Hospitalization)
  Sender: FDA-Public Use
  Company Number: IT-BAXTER-2020BAX000366

PATIENT
  Age: 56 Year
  Sex: Female

DRUGS (11)
  1. DOXIL [Suspect]
     Active Substance: DOXORUBICIN HYDROCHLORIDE
     Indication: NEUROFIBROSARCOMA
     Dosage: ALONGSIDE IFOSFAMIDE
     Route: 065
  2. DOXIL [Suspect]
     Active Substance: DOXORUBICIN HYDROCHLORIDE
     Indication: METASTASES TO BONE
     Route: 065
  3. DACARBAZINE. [Suspect]
     Active Substance: DACARBAZINE
     Indication: METASTASES TO BONE
     Route: 065
  4. DACARBAZINE. [Suspect]
     Active Substance: DACARBAZINE
     Indication: NEUROFIBROSARCOMA
     Route: 065
  5. DOXIL [Suspect]
     Active Substance: DOXORUBICIN HYDROCHLORIDE
     Indication: METASTASES TO LUNG
     Dosage: AS MAID CHEMOTHERAPY
     Route: 065
     Dates: start: 201707
  6. HOLOXAN [Suspect]
     Active Substance: IFOSFAMIDE
     Indication: METASTASES TO LUNG
     Route: 065
  7. ZOLEDRONIC ACID [Concomitant]
     Active Substance: ZOLEDRONIC ACID
     Indication: PRODUCT USED FOR UNKNOWN INDICATION
     Dosage: ALONGSIDE IFOSFAMIDE
     Route: 065
  8. MESNA. [Concomitant]
     Active Substance: MESNA
     Indication: PRODUCT USED FOR UNKNOWN INDICATION
     Dosage: AS MAID CHEMOTHERAPY
     Route: 065
  9. HOLOXAN [Suspect]
     Active Substance: IFOSFAMIDE
     Indication: NEUROFIBROSARCOMA
     Dosage: ALONGSIDE DOXORUBICIN AND ALONGSIDE ZOLEDRONIC ACID
     Route: 065
  10. HOLOXAN [Suspect]
     Active Substance: IFOSFAMIDE
     Indication: METASTASES TO BONE
     Dosage: AS MAID CHEMOTHERAPY
     Route: 065
     Dates: start: 201607
  11. DACARBAZINE. [Suspect]
     Active Substance: DACARBAZINE
     Indication: METASTASES TO LUNG
     Dosage: AS MAID CHEMOTHERAPY
     Route: 065
     Dates: start: 201607

REACTIONS (2)
  - Device related infection [Recovered/Resolved]
  - Bacteraemia [Recovered/Resolved]

NARRATIVE: CASE EVENT DATE: 20170415
